FAERS Safety Report 9495073 (Version 2)
Quarter: 2013Q3

REPORT INFORMATION
  Report Type: Spontaneous
  Country: DK (occurrence: DK)
  Receive Date: 20130903
  Receipt Date: 20130903
  Transmission Date: 20140515
  Serious: Yes (Congenital Anomaly, Other)
  Sender: FDA-Public Use
  Company Number: DK-JNJFOC-EMADSS2002007582

PATIENT
  Age: 0 Day
  Sex: Male

DRUGS (2)
  1. VERMOX [Suspect]
     Indication: ENTEROBIASIS
     Route: 064
     Dates: start: 20000505
  2. PROCTOSEDYL [Concomitant]
     Route: 015

REACTIONS (3)
  - Brain malformation [Not Recovered/Not Resolved]
  - Mental retardation [Not Recovered/Not Resolved]
  - Congenital anomaly [Unknown]
